FAERS Safety Report 10070470 (Version 2)
Quarter: 2014Q2

REPORT INFORMATION
  Report Type: Spontaneous
  Country: BG (occurrence: BG)
  Receive Date: 20140410
  Receipt Date: 20140425
  Transmission Date: 20141212
  Serious: Yes (Hospitalization, Other)
  Sender: FDA-Public Use
  Company Number: BG-ABBVIE-14P-022-1222208-00

PATIENT
  Age: 57 Year
  Sex: Male

DRUGS (3)
  1. HUMIRA [Suspect]
     Indication: ANKYLOSING SPONDYLITIS
     Route: 058
     Dates: start: 20130918, end: 20140301
  2. HUMIRA [Suspect]
     Indication: PSORIATIC ARTHROPATHY
  3. METHOTREXATE [Concomitant]
     Indication: PSORIATIC ARTHROPATHY
     Route: 048
     Dates: start: 201201, end: 201401

REACTIONS (6)
  - Intestinal obstruction [Unknown]
  - Colon cancer [Not Recovered/Not Resolved]
  - Unevaluable event [Unknown]
  - Abdominal pain [Unknown]
  - Change of bowel habit [Unknown]
  - Abnormal faeces [Unknown]
